FAERS Safety Report 17552596 (Version 2)
Quarter: 2020Q1

REPORT INFORMATION
  Report Type: Report from Study
  Country: None (occurrence: GR)
  Receive Date: 20200318
  Receipt Date: 20200319
  Transmission Date: 20200409
  Serious: Yes (Other)
  Sender: FDA-Public Use
  Company Number: GR-ABBVIE-20K-066-3295648-00

PATIENT
  Age: 69 Year
  Sex: Male
  Weight: 68 kg

DRUGS (9)
  1. EXTRASTATIN [Concomitant]
     Active Substance: SIMVASTATIN
     Indication: HYPERCHOLESTEROLAEMIA
     Route: 048
  2. SIMVASTATIN. [Concomitant]
     Active Substance: SIMVASTATIN
     Indication: PRODUCT USED FOR UNKNOWN INDICATION
     Route: 048
  3. DUODOPA [Suspect]
     Active Substance: CARBIDOPA\LEVODOPA
     Dosage: MD: 12.5ML; CONTINUOUS RATE: 2ML/H; ED: 1ML
     Route: 050
     Dates: start: 20200220
  4. TRIVASTAL [Concomitant]
     Active Substance: PIRIBEDIL
     Indication: PRODUCT USED FOR UNKNOWN INDICATION
     Route: 048
  5. IVABRADINE [Concomitant]
     Active Substance: IVABRADINE
     Indication: PRODUCT USED FOR UNKNOWN INDICATION
     Route: 048
  6. DUODOPA [Suspect]
     Active Substance: CARBIDOPA\LEVODOPA
     Dosage: MORNING DOSE: 12.5ML; CONTINUOUS RATE: 1.5ML/H; EXTRA DOSE: 1ML (LOCKED FOR 5H)
     Route: 050
     Dates: start: 2020
  7. MADOPAR [Concomitant]
     Active Substance: BENSERAZIDE HYDROCHLORIDE\LEVODOPA
     Indication: PRODUCT USED FOR UNKNOWN INDICATION
     Dosage: (200+50)MG
     Route: 048
  8. DUODOPA [Suspect]
     Active Substance: CARBIDOPA\LEVODOPA
     Indication: PARKINSON^S DISEASE
     Dosage: MD: 12ML; CR: 1.8ML/H; ED: 1ML
     Route: 050
     Dates: start: 20200210, end: 20200220
  9. PROCORALAN [Concomitant]
     Active Substance: IVABRADINE
     Indication: CARDIAC FAILURE
     Route: 048

REACTIONS (3)
  - Eye haematoma [Not Recovered/Not Resolved]
  - Fall [Recovered/Resolved]
  - On and off phenomenon [Not Recovered/Not Resolved]

NARRATIVE: CASE EVENT DATE: 202002
